FAERS Safety Report 17479290 (Version 1)
Quarter: 2020Q1

REPORT INFORMATION
  Report Type: Spontaneous
  Country: US (occurrence: US)
  Receive Date: 20200228
  Receipt Date: 20200228
  Transmission Date: 20200409
  Serious: No
  Sender: FDA-Public Use
  Company Number: US-PERRIGO-19US010914

PATIENT
  Sex: Female

DRUGS (1)
  1. MICONAZOLE NITRATE. [Suspect]
     Active Substance: MICONAZOLE NITRATE
     Indication: PRODUCT USED FOR UNKNOWN INDICATION
     Dosage: 200 MG, NIGHTLY FOR 3 NIGHTS
     Route: 067
     Dates: start: 201908, end: 201908

REACTIONS (3)
  - Vulvovaginal burning sensation [Recovered/Resolved]
  - Vulvovaginal discomfort [Unknown]
  - Dysuria [Recovered/Resolved]

NARRATIVE: CASE EVENT DATE: 201908
